FAERS Safety Report 4296414-3 (Version None)
Quarter: 2004Q1

REPORT INFORMATION
  Report Type: 
  Country: None (occurrence: None)
  Receive Date: 20040213
  Receipt Date: 20040213
  Transmission Date: 20041129
  Serious: Yes (Disabling)
  Sender: FDA-Public Use
  Company Number: None

PATIENT
  Sex: Female
  Weight: 72.5755 kg

DRUGS (1)
  1. ZOLOFT [Suspect]
     Indication: PHOBIA
     Dosage: 1 Q.D.
     Dates: start: 19980701, end: 20020710

REACTIONS (2)
  - ANXIETY [None]
  - CRYING [None]
